FAERS Safety Report 8182626-5 (Version None)
Quarter: 2012Q1

REPORT INFORMATION
  Report Type: 
  Country: None (occurrence: None)
  Receive Date: 20120301
  Receipt Date: 20120301
  Transmission Date: 20120608
  Serious: Yes (Life-Threatening, Other)
  Sender: FDA-Public Use
  Company Number: None

PATIENT
  Age: 74 Year
  Sex: Female
  Weight: 53.5244 kg

DRUGS (1)
  1. PRADAXA [Suspect]
     Indication: ATRIAL FIBRILLATION
     Dosage: 150 MG. 2X DAILY ORALLY WEEK OR 8-9 DAYS
     Route: 048
     Dates: start: 20111001

REACTIONS (4)
  - BLOOD PRESSURE INCREASED [None]
  - REFUSAL OF TREATMENT BY PATIENT [None]
  - DIZZINESS [None]
  - CEREBROVASCULAR ACCIDENT [None]
